FAERS Safety Report 6061140-7 (Version None)
Quarter: 2009Q1

REPORT INFORMATION
  Report Type: 
  Country: None (occurrence: None)
  Receive Date: 20090202
  Receipt Date: 20090128
  Transmission Date: 20090719
  Serious: Yes (Hospitalization)
  Sender: FDA-Public Use
  Company Number: US-BIOGENIDEC-2008BI030957

PATIENT
  Age: 58 Year
  Sex: Male
  Weight: 77 kg

DRUGS (9)
  1. TYSABRI [Suspect]
     Indication: MULTIPLE SCLEROSIS
     Route: 042
     Dates: start: 20080609, end: 20081107
  2. ASPIRIN [Concomitant]
     Route: 048
  3. ASPIRIN [Concomitant]
     Route: 054
     Dates: start: 20081101, end: 20081101
  4. TOPROL-XL [Concomitant]
     Route: 048
     Dates: end: 20081101
  5. SIMVASTATIN [Concomitant]
     Route: 048
  6. LEVOTHROID [Concomitant]
     Route: 048
     Dates: end: 20081101
  7. LEXAPRO [Concomitant]
     Route: 048
     Dates: end: 20081101
  8. PRILOSEC OTC [Concomitant]
     Route: 048
     Dates: end: 20081101
  9. ASCORBIC ACID [Concomitant]
     Route: 048

REACTIONS (8)
  - AORTIC ANEURYSM [None]
  - APHASIA [None]
  - DEHYDRATION [None]
  - DYSPHAGIA [None]
  - HYPERTENSION [None]
  - LACUNAR INFARCTION [None]
  - LEUKOCYTOSIS [None]
  - RENAL DISORDER [None]
